FAERS Safety Report 16680393 (Version 5)
Quarter: 2019Q4

REPORT INFORMATION
  Report Type: Spontaneous
  Country: JP (occurrence: JP)
  Receive Date: 20190807
  Receipt Date: 20191015
  Transmission Date: 20200122
  Serious: Yes (Hospitalization, Other)
  Sender: FDA-Public Use
  Company Number: JP-GILEAD-2019-0421578

PATIENT
  Age: 76 Year
  Sex: Female
  Weight: 46.5 kg

DRUGS (23)
  1. BISOPROLOL FUMARATE. [Suspect]
     Active Substance: BISOPROLOL FUMARATE
     Dosage: 0.625 MG, QD
     Route: 048
  2. EPCLUSA [Suspect]
     Active Substance: SOFOSBUVIR\VELPATASVIR
     Indication: HEPATIC CIRRHOSIS
     Dosage: 1 DOSAGE FORM, QD
     Route: 048
     Dates: start: 20190725, end: 20190725
  3. JANUVIA [Concomitant]
     Active Substance: SITAGLIPTIN PHOSPHATE
     Dosage: 50 MG
  4. URSODEOXYCHOLIC ACID [Concomitant]
     Active Substance: URSODIOL
     Dosage: 100 MG
     Route: 048
  5. PIARLE [Concomitant]
     Active Substance: LACTULOSE
  6. ELIQUIS [Concomitant]
     Active Substance: APIXABAN
     Dosage: 2.5 MG
     Dates: start: 201808
  7. VOGLIBOSE [Concomitant]
     Active Substance: VOGLIBOSE
     Dosage: 0.2 MG
  8. RIFXIMA [Concomitant]
     Active Substance: RIFAXIMIN
     Dosage: 200 MG
  9. BIOFERMIN [LACTOMIN] [Concomitant]
  10. INSULIN GLARGINE [Concomitant]
     Active Substance: INSULIN GLARGINE
  11. LOXONIN [Concomitant]
     Active Substance: LOXOPROFEN SODIUM
  12. SOLITA-T 3G [Concomitant]
  13. NOVORAPID [Concomitant]
     Active Substance: INSULIN ASPART
  14. AMIODARONE HYDROCHLORIDE. [Suspect]
     Active Substance: AMIODARONE HYDROCHLORIDE
     Indication: ATRIAL FIBRILLATION
     Dosage: 100 MG, QD
     Route: 048
     Dates: start: 20180611, end: 20190725
  15. DAONIL [Concomitant]
     Active Substance: GLYBURIDE
     Dosage: 2.5 MG
  16. EPCLUSA [Suspect]
     Active Substance: SOFOSBUVIR\VELPATASVIR
     Indication: HEPATITIS C
  17. IMIDAPRIL HYDROCHLORIDE [Concomitant]
     Active Substance: IMIDAPRIL HYDROCHLORIDE
     Dosage: 5 MG
  18. TEPRENONE [Concomitant]
     Active Substance: TEPRENONE
     Dosage: 50 MG
  19. AZOSEMIDE [Concomitant]
     Active Substance: AZOSEMIDE
     Dosage: 30 MG
  20. BISOPROLOL FUMARATE. [Suspect]
     Active Substance: BISOPROLOL FUMARATE
     Indication: ATRIAL FIBRILLATION
     Dosage: 2.5 MG, QD
     Route: 048
     Dates: start: 20180511, end: 20190725
  21. LIVACT [AMINO ACIDS NOS] [Concomitant]
     Dosage: 4.15 MG
  22. LANSOPRAZOLE. [Concomitant]
     Active Substance: LANSOPRAZOLE
     Dosage: 15 MG
  23. RITUXIMAB. [Concomitant]
     Active Substance: RITUXIMAB
     Dosage: 200 MG

REACTIONS (2)
  - Atrial fibrillation [Recovered/Resolved]
  - Bradycardia [Recovered/Resolved]

NARRATIVE: CASE EVENT DATE: 20190725
